FAERS Safety Report 20655299 (Version 2)
Quarter: 2022Q2

REPORT INFORMATION
  Report Type: Other
  Country: US (occurrence: None)
  Receive Date: 20220330
  Receipt Date: 20220623
  Transmission Date: 20220721
  Serious: Yes (Other)
  Sender: FDA-Public Use
  Company Number: US-ROCHE-3054772

PATIENT
  Age: 55 Year
  Sex: Female

DRUGS (8)
  1. OCRELIZUMAB [Suspect]
     Active Substance: OCRELIZUMAB
     Indication: Multiple sclerosis
     Dosage: EVERY 6 MONTHS
     Route: 042
     Dates: start: 201801, end: 202001
  2. PREDNISONE [Concomitant]
     Active Substance: PREDNISONE
     Dosage: TAPERED OFF OVER 12 D
     Route: 048
     Dates: start: 202009
  3. PREDNISONE [Concomitant]
     Active Substance: PREDNISONE
     Dosage: TAPERED OFF OVER 9 MO
     Route: 048
     Dates: start: 202012, end: 202109
  4. TRIAMCINOLONE [Concomitant]
     Active Substance: TRIAMCINOLONE
     Dosage: 40-100 MG PER ADMINISTRATION
     Route: 026
     Dates: start: 202012, end: 202103
  5. METHYLPREDNISOLONE [Concomitant]
     Active Substance: METHYLPREDNISOLONE
     Dosage: 5 D
     Route: 042
     Dates: start: 202012
  6. CYCLOSPORINE [Concomitant]
     Active Substance: CYCLOSPORINE
     Dosage: DECREASED TO 75 MG TWICE DAILY
     Route: 048
     Dates: start: 202101, end: 202103
  7. CLOBETASOL [Concomitant]
     Active Substance: CLOBETASOL
     Route: 061
     Dates: start: 202012, end: 202103
  8. METRONIDAZOLE [Concomitant]
     Active Substance: METRONIDAZOLE
     Route: 067

REACTIONS (1)
  - Pyoderma gangrenosum [Recovered/Resolved]
